FAERS Safety Report 20068791 (Version 1)
Quarter: 2021Q4

REPORT INFORMATION
  Report Type: Spontaneous
  Country: US (occurrence: US)
  Receive Date: 20211115
  Receipt Date: 20211115
  Transmission Date: 20220303
  Serious: No
  Sender: FDA-Public Use
  Company Number: US-TEVA-2021-US-1974834

PATIENT
  Age: 36 Year
  Sex: Male

DRUGS (8)
  1. KETOCONAZOLE [Suspect]
     Active Substance: KETOCONAZOLE
     Indication: Seborrhoeic dermatitis
     Dosage: APPLY TO AFFECTED AREA OF FACE AND EARS QD-BID PRN
     Route: 061
     Dates: start: 2020
  2. KETOCONAZOLE [Suspect]
     Active Substance: KETOCONAZOLE
     Dosage: 2X/WEEK
     Route: 061
     Dates: start: 2020
  3. KETOCONAZOLE [Suspect]
     Active Substance: KETOCONAZOLE
     Dosage: ABOUT 4 TIMES PER WEEK BEHIND THE EARS AND ON THE FACE
     Route: 061
     Dates: start: 2020
  4. EUCRISA [Suspect]
     Active Substance: CRISABOROLE
     Indication: Seborrhoeic dermatitis
     Dosage: AAA FACE, SCALP AND EARS QD-BID PRN
     Route: 061
     Dates: start: 2020
  5. EUCRISA [Suspect]
     Active Substance: CRISABOROLE
     Dosage: INCREASE TO BID PRN FLARE
     Route: 061
     Dates: start: 2020
  6. EUCRISA [Suspect]
     Active Substance: CRISABOROLE
     Dosage: 2-3 TIMES PER WEEK
     Route: 061
     Dates: start: 2020
  7. KETOCONAZOLE [Suspect]
     Active Substance: KETOCONAZOLE
     Indication: Seborrhoeic dermatitis
     Dosage: AAA DAMP SCALP. LET SIT FOR 3-5 MINUTES THEN RINSE. USE 2-3 TIMES PER WEEK
     Route: 061
     Dates: start: 2020
  8. KETOCONAZOLE [Suspect]
     Active Substance: KETOCONAZOLE
     Dosage: RNATE BETWEEN KETOCONAZOLE SHAMPOO AND OTC HEAD AND SHOULDERS QOD
     Route: 061
     Dates: start: 2020

REACTIONS (8)
  - Acne [Unknown]
  - Rash [Unknown]
  - Pigmentation disorder [Unknown]
  - Folliculitis [Unknown]
  - Scab [Unknown]
  - Skin discolouration [Unknown]
  - Pain [Unknown]
  - Skin haemorrhage [Unknown]

NARRATIVE: CASE EVENT DATE: 20200101
